FAERS Safety Report 9513218 (Version 2)
Quarter: 2013Q3

REPORT INFORMATION
  Report Type: Spontaneous
  Country: US (occurrence: US)
  Receive Date: 20130910
  Receipt Date: 20130925
  Transmission Date: 20140515
  Serious: No
  Sender: FDA-Public Use
  Company Number: US-PFIZER INC-2013258574

PATIENT
  Age: 66 Year
  Sex: Female
  Weight: 56.69 kg

DRUGS (2)
  1. LYRICA [Suspect]
     Indication: TRIGEMINAL NEURALGIA
     Dosage: 50 MG, 2X/DAY
  2. TRILEPTAL [Concomitant]
     Dosage: UNK

REACTIONS (2)
  - Osteoporosis [Unknown]
  - Vitamin D decreased [Unknown]
